FAERS Safety Report 8375822-5 (Version None)
Quarter: 2012Q2

REPORT INFORMATION
  Report Type: 
  Country: None (occurrence: None)
  Receive Date: 20120522
  Receipt Date: 20120509
  Transmission Date: 20120825
  Serious: No
  Sender: FDA-Public Use
  Company Number: US-JNJFOC-20120511474

PATIENT
  Sex: Male
  Weight: 113.4 kg

DRUGS (1)
  1. FENTANYL-100 [Suspect]
     Indication: NECK PAIN
     Dosage: NDC 0781-7243-55
     Route: 062

REACTIONS (2)
  - PRODUCT QUALITY ISSUE [None]
  - POOR QUALITY DRUG ADMINISTERED [None]
